FAERS Safety Report 26177582 (Version 3)
Quarter: 2025Q4

REPORT INFORMATION
  Report Type: Report from Study
  Country: US (occurrence: US)
  Receive Date: 20251219
  Receipt Date: 20251227
  Transmission Date: 20260117
  Serious: Yes (Hospitalization)
  Sender: ROCHE
  Company Number: US-ROCHE-10000464096

PATIENT
  Age: 74 Year
  Sex: Female

DRUGS (2)
  1. XOLAIR PFS [Suspect]
     Active Substance: OMALIZUMAB
     Indication: Asthma
     Dosage: INJECT THE CONTENTS OF 2 DEVICES UNDER THE SKIN EVERY 4 WEEKS (TOTAL: 300MG EVERY 4 WEEKS)
  2. XOLAIR PFS [Suspect]
     Active Substance: OMALIZUMAB

REACTIONS (1)
  - Pneumonia [Unknown]
